FAERS Safety Report 24741705 (Version 1)
Quarter: 2024Q4

REPORT INFORMATION
  Report Type: Spontaneous
  Country: JP (occurrence: None)
  Receive Date: 20241217
  Receipt Date: 20241217
  Transmission Date: 20250115
  Serious: Yes (Hospitalization)
  Sender: CMP PHARMA
  Company Number: JP-CMPPHARMA-000020

PATIENT
  Age: 54 Year
  Sex: Male

DRUGS (9)
  1. SPS [Suspect]
     Active Substance: SODIUM POLYSTYRENE SULFONATE
     Indication: Hyperkalaemia
     Dosage: 15GM/60ML
  2. AMLODIPINE [Suspect]
     Active Substance: AMLODIPINE BESYLATE
     Indication: Hypertension
  3. NIFEDIPINE [Suspect]
     Active Substance: NIFEDIPINE
     Indication: Hypertension
     Dosage: CONTROLLED RELEASE
  4. LANTHANUM CARBONATE [Suspect]
     Active Substance: LANTHANUM CARBONATE
     Indication: Chronic kidney disease-mineral and bone disorder
  5. CALCIUM CARBONATE [Suspect]
     Active Substance: CALCIUM CARBONATE
     Indication: Chronic kidney disease-mineral and bone disorder
     Dosage: PRECIPITATED
  6. AZILSARTAN KAMEDOXOMIL [Concomitant]
     Active Substance: AZILSARTAN KAMEDOXOMIL
     Indication: Hypertension
  7. DOXAZOSIN [Concomitant]
     Active Substance: DOXAZOSIN\DOXAZOSIN MESYLATE
     Indication: Hypertension
  8. ISOSORBIDE MONONITRATE [Concomitant]
     Active Substance: ISOSORBIDE MONONITRATE
     Indication: Hypertension
     Dosage: TAPE
  9. ALFACALCIDOL [Concomitant]
     Active Substance: ALFACALCIDOL
     Indication: Chronic kidney disease-mineral and bone disorder

REACTIONS (4)
  - Gastric ulcer [Unknown]
  - Duodenal ulcer haemorrhage [Unknown]
  - Gastric ulcer haemorrhage [Unknown]
  - Hyperplasia [Unknown]
